FAERS Safety Report 12884782 (Version 1)
Quarter: 2016Q4

REPORT INFORMATION
  Report Type: Spontaneous
  Country: US (occurrence: US)
  Receive Date: 20161025
  Receipt Date: 20161025
  Transmission Date: 20170207
  Serious: Yes (Other)
  Sender: FDA-Public Use
  Company Number: None

PATIENT
  Age: 29 Year
  Sex: Female
  Weight: 84.6 kg

DRUGS (2)
  1. SHAROBEL [Suspect]
     Active Substance: NORETHINDRONE
  2. ORTHO TRI CYCLEN [Suspect]
     Active Substance: ETHINYL ESTRADIOL\NORGESTIMATE
     Indication: CONTRACEPTION

REACTIONS (3)
  - Depression [None]
  - Migraine with aura [None]
  - Dry eye [None]

NARRATIVE: CASE EVENT DATE: 20150204
